FAERS Safety Report 18844580 (Version 1)
Quarter: 2021Q1

REPORT INFORMATION
  Report Type: Spontaneous
  Country: US (occurrence: US)
  Receive Date: 20210203
  Receipt Date: 20210203
  Transmission Date: 20210419
  Serious: Yes (Hospitalization, Other)
  Sender: FDA-Public Use
  Company Number: None

PATIENT
  Age: 38 Year
  Sex: Male
  Weight: 119.29 kg

DRUGS (1)
  1. SERTRALINE (SERTRALINE HCL 100MG TAB) [Suspect]
     Active Substance: SERTRALINE HYDROCHLORIDE
     Indication: POST-TRAUMATIC STRESS DISORDER
     Dates: start: 20200716, end: 20200719

REACTIONS (4)
  - Gastrooesophageal reflux disease [None]
  - Gastric ulcer [None]
  - Gastric haemorrhage [None]
  - Gastric ulcer haemorrhage [None]

NARRATIVE: CASE EVENT DATE: 20200719
